FAERS Safety Report 21137763 (Version 1)
Quarter: 2022Q3

REPORT INFORMATION
  Report Type: Spontaneous
  Country: US (occurrence: None)
  Receive Date: 20220727
  Receipt Date: 20220727
  Transmission Date: 20221027
  Serious: Yes (Disabling)
  Sender: FDA-Public Use
  Company Number: None

PATIENT
  Age: 54 Year
  Sex: Female
  Weight: 83.25 kg

DRUGS (1)
  1. MAGNESIUM CITRATE [Suspect]
     Active Substance: MAGNESIUM CITRATE
     Indication: Colonoscopy
     Dosage: OTHER STRENGTH : OUNCE;?OTHER QUANTITY : 2 BOTTLE;?OTHER FREQUENCY : 2 X^S FOR COLONOSC;?
     Route: 048
     Dates: start: 20220602, end: 20220603

REACTIONS (2)
  - Recalled product administered [None]
  - Procedural pain [None]

NARRATIVE: CASE EVENT DATE: 20220603
